FAERS Safety Report 10169093 (Version 1)
Quarter: 2014Q2

REPORT INFORMATION
  Report Type: Spontaneous
  Country: US (occurrence: None)
  Receive Date: 20140509
  Receipt Date: 20140509
  Transmission Date: 20141212
  Serious: Yes (Life-Threatening, Hospitalization, Other)
  Sender: FDA-Public Use
  Company Number: ADR-2014-00775

PATIENT
  Age: 59 Year
  Sex: Male

DRUGS (4)
  1. BACLOFEN INTRATHECAL [Suspect]
     Indication: PAIN
  2. DILAUDID INTRATHECAL [Suspect]
     Indication: PAIN
  3. BUPIVACAINE INTRATHECAL [Suspect]
  4. CLONIDINE INTRATHECAL [Suspect]

REACTIONS (1)
  - Cardio-respiratory arrest [None]
